FAERS Safety Report 15129863 (Version 2)
Quarter: 2018Q3

REPORT INFORMATION
  Report Type: Spontaneous
  Country: US (occurrence: US)
  Receive Date: 20180711
  Receipt Date: 20180713
  Transmission Date: 20181010
  Serious: Yes (Life-Threatening, Hospitalization)
  Sender: FDA-Public Use
  Company Number: US-ASTRAZENECA-2018SE85886

PATIENT
  Age: 21359 Day
  Sex: Male
  Weight: 72.6 kg

DRUGS (4)
  1. BRILINTA [Suspect]
     Active Substance: TICAGRELOR
     Indication: STENT PLACEMENT
     Route: 048
     Dates: start: 20180531
  2. LIPITOR [Concomitant]
     Active Substance: ATORVASTATIN CALCIUM
     Route: 048
     Dates: start: 20180531
  3. ASPIRIN. [Concomitant]
     Active Substance: ASPIRIN
     Route: 048
     Dates: start: 20180531
  4. METOPROLOL SUCCINATE. [Suspect]
     Active Substance: METOPROLOL SUCCINATE
     Indication: BLOOD PRESSURE ABNORMAL
     Route: 048
     Dates: start: 20180531

REACTIONS (16)
  - Blood pressure increased [Recovering/Resolving]
  - Skin exfoliation [Recovering/Resolving]
  - Hallucination [Unknown]
  - Abnormal faeces [Unknown]
  - Rash [Recovering/Resolving]
  - Abnormal dreams [Unknown]
  - Visual impairment [Unknown]
  - Insomnia [Recovering/Resolving]
  - Scratch [Unknown]
  - Hypoaesthesia [Recovering/Resolving]
  - Anxiety [Unknown]
  - Cardiac arrest [Recovering/Resolving]
  - Drug hypersensitivity [Recovering/Resolving]
  - Nightmare [Recovering/Resolving]
  - Contusion [Recovering/Resolving]
  - Vision blurred [Unknown]

NARRATIVE: CASE EVENT DATE: 20180531
